FAERS Safety Report 5734293-5 (Version None)
Quarter: 2008Q2

REPORT INFORMATION
  Report Type: 
  Country: None (occurrence: None)
  Receive Date: 20080507
  Receipt Date: 20080421
  Transmission Date: 20081010
  Serious: Yes (Hospitalization)
  Sender: FDA-Public Use
  Company Number: 8032159

PATIENT
  Age: 81 Year
  Sex: Male

DRUGS (10)
  1. PREDNISOLONE [Suspect]
     Indication: CHRONIC OBSTRUCTIVE PULMONARY DISEASE
     Dosage: 40 MG /D PO
     Route: 048
     Dates: start: 20080310, end: 20080407
  2. AMITRIPTYLINE HCL [Concomitant]
  3. CITRIC ACID MONOHYDRATE [Concomitant]
  4. FAMOTIDINE [Concomitant]
  5. FLIXOTIDE [Concomitant]
  6. FUROSEMIDE [Concomitant]
  7. IBUPROFEN [Concomitant]
  8. ACETAMINOPHEN [Concomitant]
  9. QUININE BISULPHATE [Concomitant]
  10. ALBUTEROL [Concomitant]

REACTIONS (3)
  - GASTRIC ULCER HAEMORRHAGE [None]
  - HAEMATEMESIS [None]
  - MELAENA [None]
